FAERS Safety Report 4440232-X (Version None)
Quarter: 2004Q3

REPORT INFORMATION
  Report Type: 
  Country: None (occurrence: None)
  Receive Date: 20040831
  Receipt Date: 20040831
  Transmission Date: 20050211
  Serious: Yes (Disabling)
  Sender: FDA-Public Use
  Company Number: None

PATIENT
  Age: 23 Year
  Sex: Female
  Weight: 63.5036 kg

DRUGS (2)
  1. CIPRO [Suspect]
     Indication: RENAL PAIN
     Dosage: ORAL
     Route: 048
     Dates: start: 20031207, end: 20031221
  2. CIPRO [Suspect]
     Indication: URINARY TRACT INFECTION
     Dosage: ORAL
     Route: 048
     Dates: start: 20031207, end: 20031221

REACTIONS (5)
  - ABASIA [None]
  - ARTHRALGIA [None]
  - CRYING [None]
  - INFLAMMATION [None]
  - PAIN [None]
